FAERS Safety Report 8016955-2 (Version None)
Quarter: 2012Q1

REPORT INFORMATION
  Report Type: 
  Country: None (occurrence: None)
  Receive Date: 20120102
  Receipt Date: 20111227
  Transmission Date: 20120608
  Serious: Yes (Hospitalization, Other)
  Sender: FDA-Public Use
  Company Number: PHEH2006US06792

PATIENT
  Sex: Female
  Weight: 65.306 kg

DRUGS (68)
  1. GLUCOSAMINE W/CHONDROITIN [Concomitant]
     Dosage: UNK, QD
     Dates: start: 20020122, end: 20030121
  2. CYCLOBENZAPRINE [Concomitant]
  3. SPORANOX [Concomitant]
  4. DEMEROL [Concomitant]
  5. FLEXERIL [Concomitant]
  6. NAPROSYN [Concomitant]
  7. PAMELOR [Concomitant]
  8. ZOLOFT [Concomitant]
  9. ZOMETA [Suspect]
     Indication: METASTASES TO BONE
     Dosage: 4MG QMONTH
     Dates: start: 20020319, end: 20031201
  10. ARIMIDEX [Concomitant]
     Dosage: 1 MG, QD
     Dates: start: 20031001
  11. CALCIUM ACETATE [Concomitant]
     Dosage: 400 MG, QID
     Dates: start: 20000929, end: 20030121
  12. NEXIUM [Concomitant]
     Indication: GASTROOESOPHAGEAL REFLUX DISEASE
     Dosage: QD PRN
     Dates: start: 20021029, end: 20040908
  13. ATARAX [Concomitant]
  14. VESICARE [Concomitant]
  15. ZYRTEC [Concomitant]
  16. AVELOX [Concomitant]
  17. MEDROL [Concomitant]
  18. RELAFEN [Concomitant]
  19. SKELAXIN [Concomitant]
  20. AREDIA [Suspect]
     Indication: METASTASES TO BONE
     Dosage: 90MG QMON IN 500CC OVER 1.5 TO 2 HOURS
     Dates: start: 20001003, end: 20020219
  21. VIOXX [Concomitant]
     Indication: BONE PAIN
     Dosage: 25 MG, QD
     Dates: start: 20010220, end: 20040908
  22. PHENERGAN [Concomitant]
  23. CYPROHEPTADINE HYDROCHLORIDE [Concomitant]
  24. PERCOCET [Concomitant]
  25. PROMETHAZINE HYDROCHLORIDE [Concomitant]
  26. CHLORHEXIDINE GLUCONATE [Concomitant]
  27. PAXIL [Concomitant]
  28. PREDNISONE [Concomitant]
  29. VITAMIN D [Concomitant]
  30. KLONOPIN [Concomitant]
  31. TEGRETOL [Concomitant]
  32. ATIVAN [Concomitant]
     Indication: ANXIETY
     Dosage: 1 MG BID PRN
     Route: 048
     Dates: start: 20000928
  33. DARVOCET-N 50 [Concomitant]
     Dosage: UNK, PRN
  34. BACTRIM [Concomitant]
  35. CELEBREX [Concomitant]
  36. FAMVIR                                  /NET/ [Concomitant]
  37. ALPRAZOLAM [Concomitant]
  38. LODINE [Concomitant]
  39. SOMA [Concomitant]
  40. TAMOXIFEN CITRATE [Concomitant]
     Indication: BREAST CANCER
     Dosage: 10 MG, BID
     Route: 048
     Dates: start: 19981031, end: 20030501
  41. ACETAMINOPHEN AND HYDROCODONE BITARTRATE [Concomitant]
  42. PROCHLORPERAZINE [Concomitant]
  43. CALCITONIN SALMON [Concomitant]
  44. TORADOL [Concomitant]
  45. NOLVADEX [Concomitant]
  46. PENICILLIN VK [Concomitant]
  47. HYDROXYZINE [Concomitant]
  48. LIDOCAINE HCL VISCOUS [Concomitant]
  49. OXYCODONE HCL [Concomitant]
  50. AMBIEN [Concomitant]
  51. ELAVIL [Concomitant]
  52. FOSAMAX [Concomitant]
     Dosage: 10 MG, QW
     Dates: start: 20020122, end: 20040219
  53. LOVENOX [Concomitant]
  54. METOCLOPRAMIDE [Concomitant]
  55. LORAZEPAM [Concomitant]
  56. ELIDEL [Concomitant]
  57. MOBIC [Concomitant]
  58. AROMASIN [Concomitant]
  59. BETAMETHASONE VALERATE [Concomitant]
  60. ACEON [Concomitant]
  61. NEURONTIN [Concomitant]
  62. ROBAXIN [Concomitant]
  63. REGLAN [Concomitant]
     Indication: GASTROOESOPHAGEAL REFLUX DISEASE
     Dosage: 10MG WITH MEALS
     Route: 048
  64. METHADONE HCL [Concomitant]
  65. GEMCITABINE [Concomitant]
  66. CODEINE [Concomitant]
  67. DESYREL [Concomitant]
  68. ULTRAM [Concomitant]

REACTIONS (59)
  - DEFORMITY [None]
  - TOOTHACHE [None]
  - DENTAL CARIES [None]
  - PURULENT DISCHARGE [None]
  - TOOTH DISORDER [None]
  - ACTINOMYCOSIS [None]
  - DYSGEUSIA [None]
  - PAIN IN JAW [None]
  - CERVICAL SPINAL STENOSIS [None]
  - CHOLECYSTITIS [None]
  - ORAL DISCOMFORT [None]
  - ANHEDONIA [None]
  - TOOTH FRACTURE [None]
  - INFLAMMATION [None]
  - BONE DISORDER [None]
  - WEIGHT DECREASED [None]
  - BONE PAIN [None]
  - ASPIRATION [None]
  - PAIN [None]
  - HYPERPLASIA [None]
  - PROCEDURAL PAIN [None]
  - GINGIVAL SWELLING [None]
  - FISTULA [None]
  - METASTASES TO BONE [None]
  - LACUNAR INFARCTION [None]
  - TOOTH INFECTION [None]
  - PAPILLOMA [None]
  - FACE OEDEMA [None]
  - TOOTH LOSS [None]
  - RASH [None]
  - URTICARIA [None]
  - SPINAL OSTEOARTHRITIS [None]
  - KYPHOSIS [None]
  - IMPAIRED HEALING [None]
  - HYPOAESTHESIA [None]
  - DERMATITIS [None]
  - PAIN IN EXTREMITY [None]
  - OSTEOARTHRITIS [None]
  - DYSPHAGIA [None]
  - MYOFASCIAL PAIN SYNDROME [None]
  - INTERVERTEBRAL DISC PROTRUSION [None]
  - NEOPLASM PROGRESSION [None]
  - PLEURAL EFFUSION [None]
  - PATHOLOGICAL FRACTURE [None]
  - OSTEONECROSIS OF JAW [None]
  - ANXIETY [None]
  - ABSCESS JAW [None]
  - ORAL CAVITY FISTULA [None]
  - COMPRESSION FRACTURE [None]
  - OSTEOMYELITIS [None]
  - EMOTIONAL DISTRESS [None]
  - BACK PAIN [None]
  - DYSPNOEA [None]
  - NEOPLASM MALIGNANT [None]
  - PRIMARY SEQUESTRUM [None]
  - TOOTH DEPOSIT [None]
  - AORTIC CALCIFICATION [None]
  - DIVERTICULUM INTESTINAL [None]
  - METASTASES TO SPINE [None]
